FAERS Safety Report 11178033 (Version 1)
Quarter: 2015Q2

REPORT INFORMATION
  Report Type: Spontaneous
  Country: US (occurrence: None)
  Receive Date: 20150515
  Receipt Date: 20150515
  Transmission Date: 20150821
  Serious: Yes (Other)
  Sender: FDA-Public Use
  Company Number: 119226

PATIENT
  Age: 46 Year
  Sex: Female
  Weight: 104.3 kg

DRUGS (1)
  1. CIMZIA [Suspect]
     Active Substance: CERTOLIZUMAB PEGOL
     Indication: PSORIATIC ARTHROPATHY
     Route: 058
     Dates: start: 20131206

REACTIONS (1)
  - Psoriasis [None]

NARRATIVE: CASE EVENT DATE: 2013
